FAERS Safety Report 18650255 (Version 2)
Quarter: 2021Q1

REPORT INFORMATION
  Report Type: Spontaneous
  Country: JP (occurrence: JP)
  Receive Date: 20201222
  Receipt Date: 20210201
  Transmission Date: 20210419
  Serious: Yes (Hospitalization)
  Sender: FDA-Public Use
  Company Number: JP-ELI_LILLY_AND_COMPANY-JP202010011093

PATIENT
  Age: 81 Year
  Sex: Female
  Weight: 50 kg

DRUGS (10)
  1. OLUMIANT [Suspect]
     Active Substance: BARICITINIB
     Dosage: 2 MG, DAILY
     Route: 048
     Dates: start: 202005, end: 20200616
  2. LANSOPRAZOLE. [Concomitant]
     Active Substance: LANSOPRAZOLE
     Route: 048
  3. ALENDRONATE [Concomitant]
     Active Substance: ALENDRONATE SODIUM
     Route: 048
  4. HOCHUEKKITO [ANGELICA ACUTILOBA ROOT;ASTRAGAL [Concomitant]
  5. ACETAMINOPHEN. [Concomitant]
     Active Substance: ACETAMINOPHEN
     Route: 048
  6. CANDESARTAN. [Concomitant]
     Active Substance: CANDESARTAN
     Route: 048
  7. OLUMIANT [Suspect]
     Active Substance: BARICITINIB
     Dosage: 2 UNK
     Route: 048
     Dates: start: 202008
  8. OLUMIANT [Suspect]
     Active Substance: BARICITINIB
     Indication: RHEUMATOID ARTHRITIS
     Dosage: 2 MG, DAILY
     Route: 048
     Dates: start: 202003, end: 202005
  9. TACROLIMUS. [Concomitant]
     Active Substance: TACROLIMUS
     Route: 048
  10. EDIROL [Concomitant]
     Active Substance: ELDECALCITOL
     Route: 048

REACTIONS (3)
  - Appendicitis [Recovered/Resolved]
  - Hepatitis B reactivation [Recovering/Resolving]
  - Liver function test increased [Recovered/Resolved]

NARRATIVE: CASE EVENT DATE: 20200518
